FAERS Safety Report 8611298-8 (Version None)
Quarter: 2012Q3

REPORT INFORMATION
  Report Type: 
  Country: None (occurrence: None)
  Receive Date: 20120822
  Receipt Date: 20120814
  Transmission Date: 20120928
  Serious: Yes (Hospitalization)
  Sender: FDA-Public Use
  Company Number: US-ABBOTT-12P-163-0944020-00

PATIENT
  Sex: Female

DRUGS (2)
  1. HUMIRA [Suspect]
     Indication: CROHN'S DISEASE
     Route: 058
  2. HUMIRA [Suspect]
     Dates: start: 20120423

REACTIONS (5)
  - WHITE BLOOD CELL COUNT INCREASED [None]
  - CROHN'S DISEASE [None]
  - PYREXIA [None]
  - ILEITIS [None]
  - ENTERITIS INFECTIOUS [None]
